FAERS Safety Report 12629407 (Version 1)
Quarter: 2016Q3

REPORT INFORMATION
  Report Type: Spontaneous
  Country: TR (occurrence: TR)
  Receive Date: 20160808
  Receipt Date: 20160808
  Transmission Date: 20161109
  Serious: Yes (Hospitalization, Other)
  Sender: FDA-Public Use
  Company Number: TR-009507513-1608TUR003016

PATIENT
  Age: 72 Year
  Sex: Female

DRUGS (1)
  1. AERIUS [Suspect]
     Active Substance: DESLORATADINE
     Indication: ANTIALLERGIC THERAPY
     Dosage: UNK

REACTIONS (6)
  - Cheilitis [Unknown]
  - Fall [Recovered/Resolved]
  - Lip swelling [Unknown]
  - Hypersensitivity [Unknown]
  - Hypotension [Recovered/Resolved]
  - Facial bones fracture [Recovered/Resolved]
